FAERS Safety Report 6534515-7 (Version None)
Quarter: 2010Q1

REPORT INFORMATION
  Report Type: 
  Country: None (occurrence: None)
  Receive Date: 20100112
  Receipt Date: 20100105
  Transmission Date: 20100710
  Serious: Yes (Other)
  Sender: FDA-Public Use
  Company Number: GB-PFIZER INC-2009303130

PATIENT
  Age: 51 Year
  Sex: Female
  Weight: 114 kg

DRUGS (8)
  1. CHAMPIX [Suspect]
     Indication: SMOKING CESSATION THERAPY
     Dosage: 0.5 MG, 1X/DAY
     Route: 048
     Dates: start: 20090917
  2. CHAMPIX [Suspect]
     Dosage: 0.5 MG, 2X/DAY
     Dates: end: 20090923
  3. ATORVASTATIN [Concomitant]
     Dosage: 40 MG, 1X/DAY
  4. BIPHASIC INSULIN INJECTION [Concomitant]
     Indication: DIABETES MELLITUS
     Dosage: UNK
     Route: 058
  5. CO-AMILOZIDE [Concomitant]
     Dosage: UNK
     Route: 048
  6. METFORMIN [Concomitant]
     Dosage: 500 MG, 1X/DAY
     Route: 048
  7. SERTRALINE [Concomitant]
     Dosage: 50 MG, 1X/DAY
     Route: 048
  8. RAMIPRIL [Concomitant]
     Dosage: 2.5 MG, 1X/DAY
     Route: 048

REACTIONS (11)
  - BLOOD GLUCOSE DECREASED [None]
  - CLUMSINESS [None]
  - DEPRESSED MOOD [None]
  - HEADACHE [None]
  - IRRITABILITY [None]
  - LETHARGY [None]
  - MOOD ALTERED [None]
  - NAUSEA [None]
  - NIGHTMARE [None]
  - ORAL DISCOMFORT [None]
  - TEARFULNESS [None]
